FAERS Safety Report 23314518 (Version 1)
Quarter: 2023Q4

REPORT INFORMATION
  Report Type: Spontaneous
  Country: CN (occurrence: CN)
  Receive Date: 20231219
  Receipt Date: 20231219
  Transmission Date: 20240109
  Serious: Yes (Hospitalization, Other)
  Sender: FDA-Public Use
  Company Number: CN-PFIZER INC-PV202300202748

PATIENT
  Age: 6 Year
  Sex: Female
  Weight: 25 kg

DRUGS (1)
  1. AZITHROMYCIN [Suspect]
     Active Substance: AZITHROMYCIN
     Indication: Anti-infective therapy
     Dosage: 0.25 G, 1X/DAY
     Route: 048
     Dates: start: 20231129, end: 20231201

REACTIONS (3)
  - Intussusception [Recovering/Resolving]
  - Melaena [Recovering/Resolving]
  - Abdominal pain [Recovering/Resolving]

NARRATIVE: CASE EVENT DATE: 20231202
